FAERS Safety Report 25615949 (Version 1)
Quarter: 2025Q3

REPORT INFORMATION
  Report Type: Report from Study
  Country: IN (occurrence: IN)
  Receive Date: 20250729
  Receipt Date: 20250729
  Transmission Date: 20251020
  Serious: Yes (Death)
  Sender: ROCHE
  Company Number: IN-ROCHE-10000347621

PATIENT
  Age: 38 Year
  Sex: Female

DRUGS (2)
  1. TECENTRIQ [Suspect]
     Active Substance: ATEZOLIZUMAB
     Indication: Adenoid cystic carcinoma of salivary gland
     Route: 042
     Dates: start: 20250409
  2. TECENTRIQ [Suspect]
     Active Substance: ATEZOLIZUMAB
     Indication: Adenoid cystic carcinoma

REACTIONS (2)
  - Death [Fatal]
  - Product use in unapproved indication [Unknown]
